FAERS Safety Report 10523760 (Version 1)
Quarter: 2014Q4

REPORT INFORMATION
  Report Type: Spontaneous
  Country: US (occurrence: US)
  Receive Date: 20141017
  Receipt Date: 20141017
  Transmission Date: 20150528
  Serious: Yes (Hospitalization, Other)
  Sender: FDA-Public Use
  Company Number: US-AMGEN INC.-USASP2014078707

PATIENT
  Age: 14 Year
  Sex: Male

DRUGS (2)
  1. METHOTREXATE [Concomitant]
     Active Substance: METHOTREXATE
     Dosage: UNK
     Dates: start: 2012
  2. ENBREL [Suspect]
     Active Substance: ETANERCEPT
     Indication: PSORIASIS
     Dosage: 50 MG, 2 TIMES/WK
     Route: 065
     Dates: start: 20110101

REACTIONS (5)
  - Antibody test positive [Not Recovered/Not Resolved]
  - Contusion [Not Recovered/Not Resolved]
  - Histoplasmosis [Recovered/Resolved]
  - Gingival pain [Not Recovered/Not Resolved]
  - Gingival discolouration [Not Recovered/Not Resolved]

NARRATIVE: CASE EVENT DATE: 201405
